FAERS Safety Report 13113155 (Version 1)
Quarter: 2017Q1

REPORT INFORMATION
  Report Type: Spontaneous
  Country: US (occurrence: US)
  Receive Date: 20170113
  Receipt Date: 20170113
  Transmission Date: 20170428
  Serious: No
  Sender: FDA-Public Use
  Company Number: None

PATIENT
  Sex: Female

DRUGS (1)
  1. HARVONI [Suspect]
     Active Substance: LEDIPASVIR\SOFOSBUVIR
     Indication: HEPATITIS C
     Dosage: 90/400 MG ONCE DAILY ORALLY
     Route: 048
     Dates: start: 20161027

REACTIONS (5)
  - Hypertension [None]
  - Dyspnoea [None]
  - Pain [None]
  - Retinal tear [None]
  - Weight increased [None]
